FAERS Safety Report 7528188-4 (Version None)
Quarter: 2011Q2

REPORT INFORMATION
  Report Type: 
  Country: None (occurrence: None)
  Receive Date: 20110607
  Receipt Date: 20100621
  Transmission Date: 20111010
  Serious: No
  Sender: FDA-Public Use
  Company Number: US-ASTRAZENECA-2010SE30173

PATIENT
  Age: 54 Year
  Sex: Male

DRUGS (5)
  1. PRILOSEC OTC [Suspect]
     Route: 048
  2. DAILY MULTIVITAMIN [Concomitant]
  3. NAPROXEN (ALEVE) [Concomitant]
  4. PRILOSEC [Suspect]
     Route: 048
  5. ASPIRIN [Concomitant]

REACTIONS (1)
  - PELVIC FRACTURE [None]
